FAERS Safety Report 24128827 (Version 2)
Quarter: 2024Q3

REPORT INFORMATION
  Report Type: Spontaneous
  Country: CH (occurrence: CH)
  Receive Date: 20240723
  Receipt Date: 20240819
  Transmission Date: 20241017
  Serious: Yes (Life-Threatening, Hospitalization)
  Sender: TEVA
  Company Number: CH-TEVA-VS-3220734

PATIENT
  Age: 7 Year
  Sex: Female

DRUGS (1)
  1. LAMOTRIGINE [Suspect]
     Active Substance: LAMOTRIGINE
     Indication: Jeavons syndrome
     Route: 065

REACTIONS (6)
  - Drug reaction with eosinophilia and systemic symptoms [Recovering/Resolving]
  - Tubulointerstitial nephritis [Unknown]
  - Encephalopathy [Recovering/Resolving]
  - Multiple organ dysfunction syndrome [Recovered/Resolved]
  - Acute hepatic failure [Recovering/Resolving]
  - Acute kidney injury [Unknown]
